FAERS Safety Report 20969794 (Version 4)
Quarter: 2022Q3

REPORT INFORMATION
  Report Type: Spontaneous
  Country: ES (occurrence: ES)
  Receive Date: 20220616
  Receipt Date: 20220805
  Transmission Date: 20221026
  Serious: Yes (Death, Life-Threatening, Hospitalization, Other)
  Sender: FDA-Public Use
  Company Number: ES-009507513-2206ESP004429

PATIENT
  Age: 65 Year
  Sex: Female
  Weight: 45.2 kg

DRUGS (3)
  1. PEMBROLIZUMAB [Suspect]
     Active Substance: PEMBROLIZUMAB
     Indication: Lung adenocarcinoma stage IV
     Dosage: FREQUENCY: ^MONTHLY^  AND ^3 CYCLES^, ALSO REPORTED AS ^3 DOSES^
     Route: 042
     Dates: start: 20201127, end: 20210108
  2. PEMETREXED [Concomitant]
     Active Substance: PEMETREXED
     Dosage: 3 CYCLES
     Dates: end: 202101
  3. CARBOPLATIN [Concomitant]
     Active Substance: CARBOPLATIN
     Dosage: 3 CYCLES
     Dates: start: 202101

REACTIONS (1)
  - Herpes simplex encephalitis [Fatal]

NARRATIVE: CASE EVENT DATE: 20210125
